FAERS Safety Report 9276789 (Version 3)
Quarter: 2013Q3

REPORT INFORMATION
  Report Type: Spontaneous
  Country: FR (occurrence: FR)
  Receive Date: 20130507
  Receipt Date: 20130829
  Transmission Date: 20140515
  Serious: Yes (Death)
  Sender: FDA-Public Use
  Company Number: FR-ACTELION-A-CH2013-82902

PATIENT
  Age: 6 Year
  Sex: Male

DRUGS (1)
  1. ZAVESCA [Suspect]
     Indication: NIEMANN-PICK DISEASE
     Dosage: 50 MG, TID
     Route: 048
     Dates: start: 20090206

REACTIONS (4)
  - Acute respiratory distress syndrome [Fatal]
  - Lung infection [Fatal]
  - Niemann-Pick disease [Not Recovered/Not Resolved]
  - Condition aggravated [Not Recovered/Not Resolved]
